FAERS Safety Report 5843379-6 (Version None)
Quarter: 2008Q3

REPORT INFORMATION
  Report Type: 
  Country: None (occurrence: None)
  Receive Date: 20080813
  Receipt Date: 20080804
  Transmission Date: 20090109
  Serious: Yes (Other)
  Sender: FDA-Public Use
  Company Number: US-ABBOTT-08P-163-0460726-00

PATIENT
  Sex: Female
  Weight: 50.848 kg

DRUGS (4)
  1. GENGRAF [Suspect]
     Indication: BONE MARROW TRANSPLANT
     Route: 048
  2. GENGRAF [Suspect]
     Indication: NEOPLASM MALIGNANT
     Route: 048
     Dates: start: 20041101
  3. GENGRAF [Suspect]
  4. ^LOTS^ DID NOT WANT TO LIST [Concomitant]

REACTIONS (2)
  - DRUG LEVEL DECREASED [None]
  - GRAFT VERSUS HOST DISEASE [None]
